FAERS Safety Report 12322160 (Version 1)
Quarter: 2016Q2

REPORT INFORMATION
  Report Type: Spontaneous
  Country: US (occurrence: US)
  Receive Date: 20160502
  Receipt Date: 20160502
  Transmission Date: 20160815
  Serious: Yes (Other)
  Sender: FDA-Public Use
  Company Number: US-APOTEX-2016AP008050

PATIENT
  Age: 55 Year
  Sex: Male

DRUGS (2)
  1. PROPAFENONE. [Concomitant]
     Active Substance: PROPAFENONE
     Indication: ATRIAL TACHYCARDIA
     Route: 065
  2. AMIODARONE HCL INJECTION [Suspect]
     Active Substance: AMIODARONE HYDROCHLORIDE
     Indication: SUPRAVENTRICULAR TACHYCARDIA
     Dosage: 150MG; OVER A PERIOD OF 10MINS
     Route: 041

REACTIONS (1)
  - Cardiac arrest [Recovered/Resolved]
